FAERS Safety Report 21383355 (Version 3)
Quarter: 2023Q1

REPORT INFORMATION
  Report Type: Report from Study
  Country: US (occurrence: US)
  Receive Date: 20220927
  Receipt Date: 20230315
  Transmission Date: 20230418
  Serious: Yes (Other)
  Sender: FDA-Public Use
  Company Number: US-ABBVIE-22K-163-4454677-00

PATIENT
  Sex: Male

DRUGS (5)
  1. HUMIRA [Suspect]
     Active Substance: ADALIMUMAB
     Indication: Crohn^s disease
     Route: 058
  2. HUMIRA [Suspect]
     Active Substance: ADALIMUMAB
     Route: 058
     Dates: start: 20180310
  3. HUMIRA [Suspect]
     Active Substance: ADALIMUMAB
     Route: 058
  4. Pfizer/BioNTech [Concomitant]
     Indication: COVID-19 immunisation
     Route: 030
     Dates: start: 20210414, end: 20210414
  5. Pfizer/BioNTech [Concomitant]
     Indication: COVID-19 immunisation
     Route: 030
     Dates: start: 20210904, end: 20210904

REACTIONS (4)
  - Ligament rupture [Recovering/Resolving]
  - Neuropathy peripheral [Recovering/Resolving]
  - Accident at work [Unknown]
  - Muscle rupture [Unknown]

NARRATIVE: CASE EVENT DATE: 20220101
